FAERS Safety Report 10247187 (Version 2)
Quarter: 2014Q3

REPORT INFORMATION
  Report Type: Spontaneous
  Country: NZ (occurrence: None)
  Receive Date: 20140617
  Receipt Date: 20140707
  Transmission Date: 20150326
  Serious: Yes (Disabling)
  Sender: FDA-Public Use
  Company Number: SYM-2014-21730

PATIENT
  Age: 64 Year
  Sex: Female

DRUGS (4)
  1. ALDARA [Suspect]
     Active Substance: IMIQUIMOD
     Indication: BASAL CELL CARCINOMA
     Dosage: 5 IN 1 WEEK
     Dates: start: 20131102, end: 20131213
  2. BENDROFLUAZIDE (BENDROFLUMETHIAZIDE) [Concomitant]
  3. CRESTOR [Concomitant]
     Active Substance: ROSUVASTATIN CALCIUM
  4. DOXEPIN (DOXEPIN) [Concomitant]

REACTIONS (6)
  - Influenza like illness [None]
  - Lethargy [None]
  - Fatigue [None]
  - Depression [None]
  - Cough [None]
  - Malaise [None]
